FAERS Safety Report 7948481-0 (Version None)
Quarter: 2011Q4

REPORT INFORMATION
  Report Type: 
  Country: None (occurrence: None)
  Receive Date: 20111130
  Receipt Date: 20111126
  Transmission Date: 20120403
  Serious: Yes (Death)
  Sender: FDA-Public Use
  Company Number: KR-BAYER-2011-111761

PATIENT
  Age: 67 Year
  Sex: Male
  Weight: 57 kg

DRUGS (13)
  1. SORAFENIB (RAF KINASE INHIBITOR) [Suspect]
     Indication: HEPATIC NEOPLASM MALIGNANT
     Dosage: DAILY DOSE 800 MG
     Route: 048
     Dates: start: 20110803, end: 20110920
  2. OXYCONTIN [Concomitant]
     Indication: ANALGESIC THERAPY
     Dosage: 20 MG, QD
     Route: 048
     Dates: start: 20100725
  3. MEGESTROL ACETATE [Concomitant]
     Indication: HEPATITIS B
     Dosage: 40 MG/ML, QD
     Route: 048
     Dates: start: 20110804, end: 20110817
  4. MONILAC [Concomitant]
     Indication: LAXATIVE SUPPORTIVE CARE
     Dosage: DAILY DOSE 20 MG
     Route: 048
     Dates: start: 20110721, end: 20110806
  5. ALBUMIN (HUMAN) [Concomitant]
     Indication: PLASMA EXPANDER TRANSFUSION
     Dosage: 100 ML, UNK
     Dates: start: 20110916, end: 20111006
  6. DOMPERIDONE MALEATE [Concomitant]
     Indication: HEPATITIS B
     Dosage: 10 MG, QD
     Route: 048
     Dates: start: 20110708, end: 20110806
  7. BIPHENYL DICARBOXYLATE [Concomitant]
     Indication: LIVER DISORDER
     Dosage: 100 MG, QD
     Route: 048
     Dates: start: 20101129, end: 20110926
  8. REBAMIPIDE [Concomitant]
     Indication: HEPATITIS B
     Dosage: 100 MG, UNK
     Route: 048
     Dates: start: 20101129, end: 20110926
  9. NEXIUM [Concomitant]
     Indication: PROPHYLAXIS
     Dosage: 40 MG, QD
     Route: 048
     Dates: start: 20110602, end: 20110806
  10. PROPRANOLOL [Concomitant]
     Indication: PRODUCT USED FOR UNKNOWN INDICATION
     Dosage: 80 MG, QD
     Route: 048
     Dates: start: 20101129, end: 20110926
  11. GASMOTIN [Concomitant]
     Indication: GASTROINTESTINAL DISORDER
     Dosage: 5 MG, QD
     Route: 048
     Dates: start: 20101129
  12. GASMOTIN [Concomitant]
  13. ONDANSETRON [Concomitant]
     Indication: HEPATITIS B
     Dosage: 8 MG, QD
     Route: 048
     Dates: start: 20110721, end: 20110804

REACTIONS (1)
  - HEPATIC FAILURE [None]
